FAERS Safety Report 6311544-X (Version None)
Quarter: 2009Q3

REPORT INFORMATION
  Report Type: 
  Country: None (occurrence: None)
  Receive Date: 20090813
  Receipt Date: 20090813
  Transmission Date: 20100115
  Serious: Yes (Hospitalization)
  Sender: FDA-Public Use
  Company Number: None

PATIENT
  Age: 38 Year
  Sex: Male
  Weight: 73.4827 kg

DRUGS (8)
  1. SUSTIVA [Suspect]
     Indication: HIV TEST POSITIVE
     Dosage: 600 MG PO QD X 5 DAYS
     Dates: start: 20070212
  2. TRUVADA [Suspect]
     Indication: HIV TEST POSITIVE
     Dosage: 200/300 MG PO QD X 5 DAYS
     Route: 048
     Dates: start: 20070212
  3. VIAGRA [Concomitant]
  4. CIALIS [Concomitant]
  5. WELLBUTRIN [Concomitant]
  6. TRAZODONE HCL [Concomitant]
  7. PRED FORTE [Concomitant]
  8. ALLEGRA [Concomitant]

REACTIONS (2)
  - FALL [None]
  - JAW FRACTURE [None]
